FAERS Safety Report 10442221 (Version 1)
Quarter: 2014Q2

REPORT INFORMATION
  Report Type: Spontaneous
  Country: US (occurrence: None)
  Receive Date: 20140604
  Receipt Date: 20140604
  Transmission Date: 20141212
  Serious: Yes (Hospitalization)
  Sender: FDA-Public Use
  Company Number: 20120611CINRY3050

PATIENT
  Age: 39 Year
  Sex: Male
  Weight: 43 kg

DRUGS (2)
  1. CINRYZE [Suspect]
     Indication: HEREDITARY ANGIOEDEMA
     Route: 042
     Dates: start: 201008, end: 201203
  2. DILAUDID [Suspect]
     Indication: PRODUCT USED FOR UNKNOWN INDICATION

REACTIONS (8)
  - Hereditary angioedema [None]
  - Hypersensitivity [None]
  - Urticaria [None]
  - Rash [None]
  - Condition aggravated [None]
  - Therapy change [None]
  - Inappropriate schedule of drug administration [None]
  - Angioedema [None]
